FAERS Safety Report 6445950 (Version 2)
Quarter: 2012Q4

REPORT INFORMATION
  Report Type: 
  Country: NZ (occurrence: NZ)
  Receive Date: 20071022
  Receipt Date: 20121105
  Transmission Date: 20130627
  Serious: Yes (Death, Other)
  Sender: FDA-Public Use
  Company Number: PHHO2007NZ17067

PATIENT
  Age: 74 Year
  Sex: Male

DRUGS (3)
  1. CLOZARIL [Suspect]
     Indication: PARKINSON^S DISEASE
     Dosage: UNK
     Route: 048
     Dates: start: 19970115
  2. CLOZARIL [Suspect]
     Dosage: 75 mg, 25 mg morning (0800) and 50 mg evening (1700)
     Route: 048
     Dates: start: 20050117, end: 200709
  3. CLOZARIL [Suspect]
     Dosage: UNK
     Route: 048
     Dates: end: 20070918

REACTIONS (2)
  - Cardio-respiratory arrest [Fatal]
  - Decreased appetite [Unknown]
